FAERS Safety Report 10228302 (Version 1)
Quarter: 2014Q2

REPORT INFORMATION
  Report Type: Spontaneous
  Country: IE (occurrence: IE)
  Receive Date: 20140610
  Receipt Date: 20140610
  Transmission Date: 20141212
  Serious: Yes (Hospitalization)
  Sender: FDA-Public Use
  Company Number: IE-TAKEDA-2014JNJ003795

PATIENT
  Sex: 0

DRUGS (13)
  1. VELCADE [Suspect]
     Indication: PLASMA CELL MYELOMA
     Dosage: 1.3 MG/M2, UNK
     Route: 065
     Dates: start: 20131115, end: 20140523
  2. FOLIC ACID [Concomitant]
  3. DIOVAN [Concomitant]
  4. ALLOPURINOL [Concomitant]
  5. VALTREX [Concomitant]
  6. ASPIRIN [Concomitant]
  7. JANUVIA [Concomitant]
  8. METFORMIN [Concomitant]
  9. GLICLAZIDE [Concomitant]
  10. PREDNISOLONE [Concomitant]
  11. MELPHALAN [Concomitant]
  12. ATORVASTATIN [Concomitant]
  13. AMLODIPINE [Concomitant]

REACTIONS (3)
  - Hyperproteinaemia [Unknown]
  - Blood calcium increased [Unknown]
  - Malaise [Unknown]
